FAERS Safety Report 18819328 (Version 1)
Quarter: 2021Q1

REPORT INFORMATION
  Report Type: Spontaneous
  Country: US (occurrence: US)
  Receive Date: 20210201
  Receipt Date: 20210201
  Transmission Date: 20210419
  Serious: No
  Sender: FDA-Public Use
  Company Number: US-LANNETT COMPANY, INC.-US-2020LAN000189

PATIENT
  Sex: Male

DRUGS (1)
  1. HYDROCHLOROTHIAZIDE; TRIAMTERENE [Suspect]
     Active Substance: HYDROCHLOROTHIAZIDE\TRIAMTERENE
     Indication: MENIERE^S DISEASE
     Dosage: UNK
     Route: 065

REACTIONS (5)
  - Vertigo [Unknown]
  - Feeling abnormal [Unknown]
  - Dizziness [Unknown]
  - Product use in unapproved indication [Unknown]
  - Therapeutic product effect decreased [Unknown]
